FAERS Safety Report 15233205 (Version 2)
Quarter: 2018Q3

REPORT INFORMATION
  Report Type: Report from Study
  Country: US (occurrence: US)
  Receive Date: 20180802
  Receipt Date: 20180821
  Transmission Date: 20181010
  Serious: Yes (Death)
  Sender: FDA-Public Use
  Company Number: US-TEVA-2018-US-934811

PATIENT
  Age: 52 Year
  Sex: Female

DRUGS (3)
  1. LORATADINE. [Concomitant]
     Active Substance: LORATADINE
     Indication: PREMEDICATION
     Dosage: THE NIGHT PRIOR, THE MORNING OF, AND IMMEDIATELY BEFORE THE PACLITAXEL INFUSION
     Route: 048
  2. CETIRIZINE [Concomitant]
     Active Substance: CETIRIZINE HYDROCHLORIDE
     Indication: PREMEDICATION
     Dosage: THE NIGHT PRIOR, THE MORNING OF, AND IMMEDIATELY BEFORE THE PACLITAXEL INFUSION
     Route: 065
  3. PACLITAXEL. [Suspect]
     Active Substance: PACLITAXEL
     Indication: OVARIAN CANCER STAGE IV
     Dosage: STEP 2 OF DESENSITISATION: 10 ML/H
     Route: 050

REACTIONS (1)
  - Drug hypersensitivity [Fatal]
